FAERS Safety Report 15015568 (Version 1)
Quarter: 2018Q2

REPORT INFORMATION
  Report Type: Spontaneous
  Country: US (occurrence: US)
  Receive Date: 20180615
  Receipt Date: 20180615
  Transmission Date: 20180711
  Serious: No
  Sender: FDA-Public Use
  Company Number: US-MYLANLABS-2018M1034298

PATIENT
  Sex: Female

DRUGS (2)
  1. VALIUM [Concomitant]
     Active Substance: DIAZEPAM
     Indication: PRODUCT USED FOR UNKNOWN INDICATION
     Dosage: UNK
  2. TRIFLUOPERAZINE HYDROCHLORIDE TABLETS, USP [Suspect]
     Active Substance: TRIFLUOPERAZINE HYDROCHLORIDE
     Indication: MENTAL DISORDER
     Dosage: UNK
     Route: 048
     Dates: end: 20161201

REACTIONS (6)
  - Feeling of body temperature change [Not Recovered/Not Resolved]
  - Cerebral disorder [Unknown]
  - Withdrawal syndrome [Unknown]
  - Feeling abnormal [Recovered/Resolved]
  - Discomfort [Unknown]
  - Hyperhidrosis [Not Recovered/Not Resolved]
